FAERS Safety Report 19424309 (Version 2)
Quarter: 2021Q3

REPORT INFORMATION
  Report Type: Spontaneous
  Country: US (occurrence: US)
  Receive Date: 20210616
  Receipt Date: 20210914
  Transmission Date: 20211014
  Serious: No
  Sender: FDA-Public Use
  Company Number: US-SK LIFE SCIENCE, INC.-SKPVG-2021-000583

PATIENT

DRUGS (4)
  1. LAMICTAL [Suspect]
     Active Substance: LAMOTRIGINE
     Indication: PRODUCT USED FOR UNKNOWN INDICATION
     Dosage: UNK
     Route: 065
  2. XCOPRI [Suspect]
     Active Substance: CENOBAMATE
     Indication: SEIZURE
     Dosage: 25 MILLIGRAM, QD,
     Route: 050
     Dates: start: 20210406
  3. XCOPRI [Suspect]
     Active Substance: CENOBAMATE
     Dosage: 100 MILLIGRAM, QD
     Route: 050
  4. LAMICTAL [Suspect]
     Active Substance: LAMOTRIGINE
     Dosage: INCREASED DOSE
     Route: 065

REACTIONS (7)
  - Wrong technique in product usage process [Unknown]
  - Fungal infection [Unknown]
  - Pyrexia [Unknown]
  - Eye movement disorder [Not Recovered/Not Resolved]
  - Off label use [Unknown]
  - Behaviour disorder [Not Recovered/Not Resolved]
  - Infection [Unknown]

NARRATIVE: CASE EVENT DATE: 20210425
